FAERS Safety Report 20831165 (Version 2)
Quarter: 2022Q2

REPORT INFORMATION
  Report Type: Report from Study
  Country: JP (occurrence: JP)
  Receive Date: 20220515
  Receipt Date: 20220629
  Transmission Date: 20220721
  Serious: Yes (Hospitalization)
  Sender: FDA-Public Use
  Company Number: JP-BEH-2022140770

PATIENT
  Age: 47 Year
  Sex: Male
  Weight: 93 kg

DRUGS (5)
  1. PRIVIGEN [Suspect]
     Active Substance: HUMAN IMMUNOGLOBULIN G
     Indication: Chronic inflammatory demyelinating polyradiculoneuropathy
     Dosage: 400 MILLILITER, QD, ADMINISTRATION DURATION: 160 MINUTES
     Route: 041
     Dates: start: 20200107, end: 20200108
  2. PRIVIGEN [Suspect]
     Active Substance: HUMAN IMMUNOGLOBULIN G
     Dosage: 400 MILLILITER, QD
     Route: 041
     Dates: start: 20200420, end: 20200420
  3. PRIVIGEN [Suspect]
     Active Substance: HUMAN IMMUNOGLOBULIN G
     Dosage: 400 MILLILITER, QD, ADMINISTRATION DURATION: 130 MINUTES
     Route: 041
     Dates: start: 20200421, end: 20200421
  4. PRIVIGEN [Suspect]
     Active Substance: HUMAN IMMUNOGLOBULIN G
     Dosage: 276 MILLILITER, QD, ADMINISTRATION DURATION: 65 MINUTES
     Route: 041
     Dates: start: 20200720, end: 20200720
  5. PRIVIGEN [Suspect]
     Active Substance: HUMAN IMMUNOGLOBULIN G
     Dosage: 400 MILLILITER, ADMINISTRATION DURATION: 160 MINUTES
     Route: 041
     Dates: start: 20200727, end: 20200727

REACTIONS (1)
  - Discomfort [Recovered/Resolved]

NARRATIVE: CASE EVENT DATE: 20200720
